FAERS Safety Report 21065019 (Version 1)
Quarter: 2022Q3

REPORT INFORMATION
  Report Type: Report from Study
  Country: US (occurrence: None)
  Receive Date: 20220711
  Receipt Date: 20220711
  Transmission Date: 20221027
  Serious: Yes (Death)
  Sender: FDA-Public Use
  Company Number: 2022A249083

PATIENT
  Sex: Female
  Weight: 90.7 kg

DRUGS (4)
  1. LYNPARZA [Suspect]
     Active Substance: OLAPARIB
     Indication: Breast cancer female
     Route: 048
     Dates: start: 20211104
  2. FAMOTIDINE [Concomitant]
     Active Substance: FAMOTIDINE
  3. STOOL SOFTENER (DOCUSATE) [Concomitant]
     Active Substance: DOCUSATE
  4. TYLENOL [Concomitant]
     Active Substance: ACETAMINOPHEN

REACTIONS (1)
  - Death [Fatal]
